FAERS Safety Report 6938174-0 (Version None)
Quarter: 2010Q3

REPORT INFORMATION
  Report Type: 
  Country: None (occurrence: None)
  Receive Date: 20100817
  Receipt Date: 20100805
  Transmission Date: 20110219
  Serious: Yes (Hospitalization)
  Sender: FDA-Public Use
  Company Number: 2010MA001466

PATIENT
  Age: 30 Year
  Sex: Female

DRUGS (3)
  1. PHENOBARBITAL TAB [Suspect]
     Indication: POST-TRAUMATIC EPILEPSY
  2. CEFTRIAXONE [Suspect]
  3. VALPROIC ACID [Concomitant]

REACTIONS (6)
  - ALANINE AMINOTRANSFERASE INCREASED [None]
  - ANGIOEDEMA [None]
  - ASPARTATE AMINOTRANSFERASE INCREASED [None]
  - DRUG HYPERSENSITIVITY [None]
  - LYMPHADENOPATHY [None]
  - PYREXIA [None]
